FAERS Safety Report 5950169-2 (Version None)
Quarter: 2008Q4

REPORT INFORMATION
  Report Type: 
  Country: None (occurrence: None)
  Receive Date: 20081112
  Receipt Date: 20081107
  Transmission Date: 20090506
  Serious: Yes (Other)
  Sender: FDA-Public Use
  Company Number: B0544886A

PATIENT
  Age: 52 Year
  Sex: Female

DRUGS (3)
  1. NIQUITIN CQ 4MG LOZENGE, MINT [Suspect]
     Dosage: .5LOZ PER DAY
     Route: 002
  2. ALBUTEROL SULFATE [Concomitant]
  3. PREDNISOLONE [Concomitant]

REACTIONS (6)
  - ANXIETY [None]
  - CHILLS [None]
  - COUGH [None]
  - EAR PAIN [None]
  - HEADACHE [None]
  - RESPIRATORY DISTRESS [None]
